FAERS Safety Report 16237696 (Version 1)
Quarter: 2019Q2

REPORT INFORMATION
  Report Type: Spontaneous
  Country: JP (occurrence: JP)
  Receive Date: 20190425
  Receipt Date: 20190425
  Transmission Date: 20190711
  Serious: Yes (Other)
  Sender: FDA-Public Use
  Company Number: JP-AMGEN-JPNCT2019065329

PATIENT
  Age: 18 Year
  Sex: Female

DRUGS (1)
  1. DENOSUMAB [Suspect]
     Active Substance: DENOSUMAB
     Indication: BONE GIANT CELL TUMOUR
     Dosage: 120 MILLIGRAM,  3 CYCLES
     Route: 065

REACTIONS (3)
  - Spinal compression fracture [Unknown]
  - Pathological fracture [Unknown]
  - Bone callus excessive [Unknown]
